FAERS Safety Report 11146576 (Version 1)
Quarter: 2015Q2

REPORT INFORMATION
  Report Type: Spontaneous
  Country: FR (occurrence: FR)
  Receive Date: 20150528
  Receipt Date: 20150528
  Transmission Date: 20150821
  Serious: Yes (Death)
  Sender: FDA-Public Use
  Company Number: FR-ASTRAZENECA-2015SE51282

PATIENT
  Age: 24881 Day
  Sex: Male

DRUGS (14)
  1. RAMIPRIL. [Concomitant]
     Active Substance: RAMIPRIL
  2. NATISPRAY [Concomitant]
     Active Substance: NITROGLYCERIN
  3. DOLIPRANE [Concomitant]
     Active Substance: ACETAMINOPHEN
  4. SPASFON [Concomitant]
     Active Substance: PHLOROGLUCINOL
  5. ZYMAD [Concomitant]
     Active Substance: CHOLECALCIFEROL
  6. BISOPROLOL [Concomitant]
     Active Substance: BISOPROLOL
  7. KARDEGIC [Suspect]
     Active Substance: ASPIRIN LYSINE
     Route: 048
     Dates: start: 20150423
  8. TAHOR [Concomitant]
     Active Substance: ATORVASTATIN CALCIUM
  9. BRILIQUE [Suspect]
     Active Substance: TICAGRELOR
     Route: 048
     Dates: start: 20150423
  10. OMEPRAZOLE. [Concomitant]
     Active Substance: OMEPRAZOLE
  11. BRILIQUE [Suspect]
     Active Substance: TICAGRELOR
     Route: 048
     Dates: start: 201412, end: 20150416
  12. NOVORAPID [Concomitant]
     Active Substance: INSULIN ASPART
  13. LEVEMIR [Concomitant]
     Active Substance: INSULIN DETEMIR
  14. KARDEGIC [Suspect]
     Active Substance: ASPIRIN LYSINE
     Route: 048
     Dates: end: 20150416

REACTIONS (4)
  - Shock haemorrhagic [Fatal]
  - Rectal haemorrhage [Fatal]
  - Melaena [Fatal]
  - Anaemia [Fatal]

NARRATIVE: CASE EVENT DATE: 20150425
